FAERS Safety Report 15148281 (Version 2)
Quarter: 2018Q3

REPORT INFORMATION
  Report Type: Report from Study
  Country: FR (occurrence: FR)
  Receive Date: 20180716
  Receipt Date: 20180808
  Transmission Date: 20181010
  Serious: Yes (Other)
  Sender: FDA-Public Use
  Company Number: FR-JNJFOC-20180714896

PATIENT
  Sex: Female

DRUGS (4)
  1. PREZISTA [Suspect]
     Active Substance: DARUNAVIR ETHANOLATE
     Indication: RETROVIRAL INFECTION
     Route: 048
  2. RETROVIR [Suspect]
     Active Substance: ZIDOVUDINE
     Indication: RETROVIRAL INFECTION
     Route: 048
     Dates: start: 20130520
  3. NORVIR [Suspect]
     Active Substance: RITONAVIR
     Indication: RETROVIRAL INFECTION
     Route: 048
  4. ISENTRESS [Suspect]
     Active Substance: RALTEGRAVIR POTASSIUM
     Indication: RETROVIRAL INFECTION
     Route: 048

REACTIONS (2)
  - Maternal exposure during pregnancy [Recovered/Resolved]
  - Premature delivery [Unknown]

NARRATIVE: CASE EVENT DATE: 20130520
